FAERS Safety Report 20612728 (Version 2)
Quarter: 2022Q1

REPORT INFORMATION
  Report Type: Spontaneous
  Country: CN (occurrence: CN)
  Receive Date: 20220318
  Receipt Date: 20220323
  Transmission Date: 20220423
  Serious: Yes (Other)
  Sender: FDA-Public Use
  Company Number: CN-PFIZER INC-202200397448

PATIENT
  Age: 61 Year
  Sex: Male
  Weight: 65 kg

DRUGS (4)
  1. CELECOXIB [Suspect]
     Active Substance: CELECOXIB
     Indication: Osteoarthropathy
     Dosage: 200 MG, 2X/DAY
     Route: 048
     Dates: start: 20220302, end: 20220303
  2. DIACEREIN [Concomitant]
     Active Substance: DIACEREIN
     Indication: Osteoarthropathy
     Dosage: 50 MG, 1X/DAY
     Route: 048
     Dates: start: 20220302, end: 20220303
  3. MAI ZHI LING [Concomitant]
     Indication: Osteoarthropathy
     Dosage: 150 MG, 2X/DAY
     Route: 048
     Dates: start: 20220302, end: 20220303
  4. GU SONG BAO [Concomitant]
     Indication: Osteoarthropathy
     Dosage: 5 G, 3X/DAY
     Route: 048
     Dates: start: 20220302, end: 20220303

REACTIONS (3)
  - Rash [Recovering/Resolving]
  - Pruritus [Recovering/Resolving]
  - Erythema [Recovering/Resolving]

NARRATIVE: CASE EVENT DATE: 20220302
